FAERS Safety Report 23230202 (Version 1)
Quarter: 2023Q4

REPORT INFORMATION
  Report Type: Spontaneous
  Country: ES (occurrence: ES)
  Receive Date: 20231127
  Receipt Date: 20231127
  Transmission Date: 20240110
  Serious: Yes (Other)
  Sender: FDA-Public Use
  Company Number: ES-SA-SAC20230130001715

PATIENT
  Age: 37 Year
  Sex: Female

DRUGS (13)
  1. CAPLACIZUMAB [Suspect]
     Active Substance: CAPLACIZUMAB
     Indication: Thrombotic thrombocytopenic purpura
     Dosage: UNK
     Route: 065
     Dates: start: 20221123
  2. CAPLACIZUMAB [Suspect]
     Active Substance: CAPLACIZUMAB
     Indication: Thrombotic thrombocytopenic purpura
     Dosage: UNK
     Route: 065
     Dates: start: 20221123
  3. CAPLACIZUMAB [Suspect]
     Active Substance: CAPLACIZUMAB
     Indication: Thrombotic thrombocytopenic purpura
     Dosage: UNK
     Route: 065
     Dates: start: 20221123
  4. CAPLACIZUMAB [Suspect]
     Active Substance: CAPLACIZUMAB
     Indication: Thrombotic thrombocytopenic purpura
     Dosage: UNK
     Route: 065
     Dates: start: 20221123
  5. CAPLACIZUMAB [Suspect]
     Active Substance: CAPLACIZUMAB
     Dosage: RESTARTED
     Route: 065
     Dates: start: 20230126
  6. CAPLACIZUMAB [Suspect]
     Active Substance: CAPLACIZUMAB
     Dosage: RESTARTED
     Route: 065
     Dates: start: 20230126
  7. CAPLACIZUMAB [Suspect]
     Active Substance: CAPLACIZUMAB
     Dosage: RESTARTED
     Route: 065
     Dates: start: 20230126
  8. CAPLACIZUMAB [Suspect]
     Active Substance: CAPLACIZUMAB
     Dosage: RESTARTED
     Route: 065
     Dates: start: 20230126
  9. BORTEZOMIB [Suspect]
     Active Substance: BORTEZOMIB
     Dosage: UNK
  10. METHYLPREDNISOLONE [Concomitant]
     Active Substance: METHYLPREDNISOLONE
     Indication: Thrombotic thrombocytopenic purpura
     Dosage: UNK
  11. RITUXIMAB [Concomitant]
     Active Substance: RITUXIMAB
     Indication: Thrombotic thrombocytopenic purpura
     Dosage: 4 DF (4 DOSES IN TOTAL)
  12. MYCOPHENOLIC ACID [Concomitant]
     Active Substance: MYCOPHENOLIC ACID
     Dosage: UNK
  13. HUMAN PLASMA [Concomitant]
     Active Substance: HUMAN PLASMA
     Indication: Thrombotic thrombocytopenic purpura
     Dosage: UNK

REACTIONS (7)
  - Petit mal epilepsy [Unknown]
  - Thrombotic thrombocytopenic purpura [Unknown]
  - Disease recurrence [Unknown]
  - Platelet count decreased [Unknown]
  - Nervous system disorder [Unknown]
  - Antibody test positive [Unknown]
  - Drug ineffective [Unknown]
